FAERS Safety Report 9310735 (Version 1)
Quarter: 2013Q2

REPORT INFORMATION
  Report Type: Other
  Country: IT (occurrence: IT)
  Receive Date: 20130528
  Receipt Date: 20130528
  Transmission Date: 20140414
  Serious: Yes (Other)
  Sender: FDA-Public Use
  Company Number: IT-BRISTOL-MYERS SQUIBB COMPANY-18921320

PATIENT
  Age: 80 Year
  Sex: Female

DRUGS (13)
  1. ARIPIPRAZOLE [Suspect]
     Indication: DEPRESSION
     Route: 048
  2. ARIPIPRAZOLE [Interacting]
     Indication: PARKINSON^S DISEASE
     Route: 048
  3. CLARITHROMYCIN [Interacting]
     Dosage: TABS
  4. FLUCONAZOLE [Interacting]
     Indication: PYREXIA
  5. LEVODOPA + BENSERAZIDE [Concomitant]
  6. ROTIGOTINE [Concomitant]
     Dosage: PATCH
  7. SODIUM VALPROATE [Concomitant]
     Dosage: TABS
  8. ROPINIROLE [Concomitant]
     Dosage: TABS
  9. LORAZEPAM [Concomitant]
     Dosage: 1 DF: 1.5 TAB/D?FORUMULATION: 2.5 MG TABS
  10. PROMETHAZINE [Concomitant]
  11. FUROSEMIDE [Concomitant]
     Dosage: 17 DAYS
  12. POTASSIUM CHLORIDE [Concomitant]
  13. PANTOPRAZOLE [Concomitant]

REACTIONS (2)
  - Syncope [Unknown]
  - Drug interaction [Unknown]
